FAERS Safety Report 9110214 (Version 2)
Quarter: 2013Q1

REPORT INFORMATION
  Report Type: Spontaneous
  Country: US (occurrence: US)
  Receive Date: 20130222
  Receipt Date: 20130311
  Transmission Date: 20140127
  Serious: Yes (Other)
  Sender: FDA-Public Use
  Company Number: US-PERRIGO-13US001693

PATIENT
  Age: 73 Year
  Sex: Male

DRUGS (1)
  1. ACETAMINOPHEN-ASPIRIN-CAFFEINE 374 [Suspect]
     Indication: OSTEOARTHRITIS
     Dosage: 2 TABLETS, SINGLE
     Route: 048
     Dates: start: 20130210, end: 20130210

REACTIONS (4)
  - Speech disorder [Recovered/Resolved]
  - Tongue disorder [Recovered/Resolved]
  - Tinnitus [Recovered/Resolved]
  - Off label use [Unknown]
